FAERS Safety Report 4600456-5 (Version None)
Quarter: 2005Q1

REPORT INFORMATION
  Report Type: 
  Country: None (occurrence: None)
  Receive Date: 20050304
  Receipt Date: 20050225
  Transmission Date: 20050727
  Serious: Yes (Other)
  Sender: FDA-Public Use
  Company Number: 20050005USST

PATIENT
  Age: 61 Year
  Sex: Female

DRUGS (2)
  1. NATULAN (PROCARBAZINE HYDROCHLORIDE) [Suspect]
     Indication: ANAPLASTIC ASTROCYTOMA
     Dates: start: 20040727, end: 20040824
  2. TEGRETOL [Concomitant]

REACTIONS (1)
  - NEPHRITIS INTERSTITIAL [None]
